FAERS Safety Report 8287538-4 (Version None)
Quarter: 2012Q2

REPORT INFORMATION
  Report Type: 
  Country: None (occurrence: None)
  Receive Date: 20120416
  Receipt Date: 20120410
  Transmission Date: 20120825
  Serious: Yes (Hospitalization)
  Sender: FDA-Public Use
  Company Number: US-BAYER-2011-114361

PATIENT
  Age: 29 Year
  Sex: Female
  Weight: 77.098 kg

DRUGS (11)
  1. MULTI-VITAMINS [Concomitant]
  2. ZICAM [Concomitant]
  3. XANAX [Concomitant]
  4. ESGIC-PLUS [Concomitant]
  5. COLACE [Concomitant]
  6. YASMIN [Suspect]
     Indication: ACNE
     Dosage: UNK
     Dates: start: 20081201, end: 20091201
  7. BENADRYL [Concomitant]
  8. PHENERGAN HCL [Concomitant]
  9. LOESTRIN 1.5/30 [Concomitant]
     Dosage: UNK
     Dates: start: 20100208
  10. DROSPIRENONE AND ETHINYL ESTRADIOL [Suspect]
     Indication: ACNE
     Dosage: UNK
     Dates: start: 20081201, end: 20091201
  11. NORCO [Concomitant]

REACTIONS (7)
  - GENERAL PHYSICAL HEALTH DETERIORATION [None]
  - EMOTIONAL DISTRESS [None]
  - CHOLECYSTITIS CHRONIC [None]
  - GALLBLADDER DISORDER [None]
  - ANXIETY [None]
  - PAIN [None]
  - INJURY [None]
